FAERS Safety Report 26049658 (Version 1)
Quarter: 2025Q4

REPORT INFORMATION
  Report Type: Spontaneous
  Country: CA (occurrence: CA)
  Receive Date: 20251115
  Receipt Date: 20251115
  Transmission Date: 20260118
  Serious: Yes (Other)
  Sender: BOEHRINGER INGELHEIM
  Company Number: CA-BoehringerIngelheim-2025-BI-107050

PATIENT
  Age: 73 Year
  Sex: Male

DRUGS (8)
  1. SPIRIVA [Suspect]
     Active Substance: TIOTROPIUM BROMIDE MONOHYDRATE
     Indication: Product used for unknown indication
  2. PREDNISONE [Suspect]
     Active Substance: PREDNISONE
     Indication: Product used for unknown indication
  3. ALBUTEROL [Suspect]
     Active Substance: ALBUTEROL
     Indication: Asthma
     Dosage: FORM: INHALATION
  4. ALVESCO [Suspect]
     Active Substance: CICLESONIDE
     Indication: Asthma
     Dosage: FORM: AEROSOL, METERED DOSE
  5. XOLAIR [Suspect]
     Active Substance: OMALIZUMAB
     Indication: Product used for unknown indication
  6. SINGULAIR [Suspect]
     Active Substance: MONTELUKAST SODIUM
     Indication: Product used for unknown indication
     Dosage: 1 EVERY 1 DAYS
  7. SYMBICORT [Suspect]
     Active Substance: BUDESONIDE\FORMOTEROL FUMARATE DIHYDRATE
     Indication: Asthma
  8. NUCALA [Suspect]
     Active Substance: MEPOLIZUMAB
     Indication: Product used for unknown indication

REACTIONS (8)
  - Asthma [Unknown]
  - Full blood count abnormal [Unknown]
  - Sleep disorder due to a general medical condition [Unknown]
  - Loss of personal independence in daily activities [Unknown]
  - Dyspnoea [Unknown]
  - Wheezing [Unknown]
  - Respiration abnormal [Unknown]
  - Therapeutic product effect incomplete [Unknown]
